FAERS Safety Report 11252654 (Version 2)
Quarter: 2015Q4

REPORT INFORMATION
  Report Type: Spontaneous
  Country: AT (occurrence: AT)
  Receive Date: 20150707
  Receipt Date: 20151110
  Transmission Date: 20160304
  Serious: Yes (Hospitalization)
  Sender: FDA-Public Use
  Company Number: AT-H14001-15-01075

PATIENT
  Age: 63 Year
  Sex: Female

DRUGS (6)
  1. EPIRUBICIN [Suspect]
     Active Substance: EPIRUBICIN
     Route: 041
  2. 5-FLUOROURACIL [Suspect]
     Active Substance: FLUOROURACIL
     Indication: BREAST CANCER
     Route: 041
  3. 5-FLUOROURACIL [Suspect]
     Active Substance: FLUOROURACIL
     Route: 041
  4. CYCLOPHOSPHAMIDE. [Suspect]
     Active Substance: CYCLOPHOSPHAMIDE
     Indication: BREAST CANCER
     Route: 041
  5. CYCLOPHOSPHAMIDE. [Suspect]
     Active Substance: CYCLOPHOSPHAMIDE
     Route: 041
  6. EPIRUBICIN [Suspect]
     Active Substance: EPIRUBICIN
     Indication: BREAST CANCER
     Route: 041
     Dates: start: 20100415

REACTIONS (8)
  - Infusion site extravasation [Recovered/Resolved]
  - Infusion site oedema [Recovered/Resolved]
  - Infusion site discolouration [Recovered/Resolved]
  - Feeling hot [Recovered/Resolved]
  - Breast pain [Recovered/Resolved]
  - White blood cell count increased [Recovered/Resolved]
  - Infusion site necrosis [Recovered/Resolved]
  - Infusion site pain [Recovered/Resolved]

NARRATIVE: CASE EVENT DATE: 201004
